FAERS Safety Report 17617820 (Version 1)
Quarter: 2020Q2

REPORT INFORMATION
  Report Type: Spontaneous
  Country: US (occurrence: US)
  Receive Date: 20200402
  Receipt Date: 20200402
  Transmission Date: 20200713
  Serious: No
  Sender: FDA-Public Use
  Company Number: NVSC2020US090856

PATIENT
  Age: 78 Year
  Sex: Female

DRUGS (2)
  1. UTIBRON NEOHALER [Suspect]
     Active Substance: GLYCOPYRROLATE\INDACATEROL MALEATE
     Indication: CHRONIC OBSTRUCTIVE PULMONARY DISEASE
     Dosage: 27.5 ?G
     Route: 055
  2. UTIBRON NEOHALER [Suspect]
     Active Substance: GLYCOPYRROLATE\INDACATEROL MALEATE
     Indication: EMPHYSEMA

REACTIONS (1)
  - Dyspnoea [Not Recovered/Not Resolved]
